FAERS Safety Report 6311678-X (Version None)
Quarter: 2009Q3

REPORT INFORMATION
  Report Type: 
  Country: None (occurrence: None)
  Receive Date: 20090813
  Receipt Date: 20090813
  Transmission Date: 20100115
  Serious: Yes (Other)
  Sender: FDA-Public Use
  Company Number: None

PATIENT
  Age: 4 Year
  Sex: Male
  Weight: 12.7007 kg

DRUGS (2)
  1. REGLAN [Suspect]
     Indication: CHEMOTHERAPY
     Dosage: 1 1/2 ML 3-4 TIMES DAY NG TUBE APPX 2-3 MONTHS
  2. REGLAN [Suspect]
     Indication: NAUSEA
     Dosage: 1 1/2 ML 3-4 TIMES DAY NG TUBE APPX 2-3 MONTHS

REACTIONS (4)
  - DYSKINESIA [None]
  - GRIMACING [None]
  - TARDIVE DYSKINESIA [None]
  - TONGUE DISORDER [None]
